FAERS Safety Report 23772920 (Version 1)
Quarter: 2024Q2

REPORT INFORMATION
  Report Type: Other
  Country: CL (occurrence: CL)
  Receive Date: 20240423
  Receipt Date: 20240423
  Transmission Date: 20240716
  Serious: Yes (Hospitalization, Other)
  Sender: FDA-Public Use
  Company Number: CL-Omnivium Pharmaceuticals LLC-2155902

PATIENT
  Age: 9 Month
  Sex: Female
  Weight: 10 kg

DRUGS (1)
  1. NUMBRINO [Suspect]
     Active Substance: COCAINE HYDROCHLORIDE
     Indication: Product used for unknown indication
     Route: 065

REACTIONS (12)
  - Thrombotic microangiopathy [Recovered/Resolved]
  - Product use issue [Unknown]
  - Microangiopathic haemolytic anaemia [Recovered/Resolved]
  - Myocardial ischaemia [Recovered/Resolved]
  - Encephalopathy [Recovered/Resolved]
  - Coagulopathy [Recovered/Resolved]
  - Hepatic failure [Recovered/Resolved]
  - Acute kidney injury [Recovered/Resolved]
  - Haemodynamic instability [Recovered/Resolved]
  - Multiple organ dysfunction syndrome [Recovered/Resolved]
  - Sympathomimetic effect [Recovered/Resolved]
  - Toxicity to various agents [Recovered/Resolved]

NARRATIVE: CASE EVENT DATE: 20210410
